FAERS Safety Report 7577084-5 (Version None)
Quarter: 2011Q2

REPORT INFORMATION
  Report Type: 
  Country: None (occurrence: None)
  Receive Date: 20110624
  Receipt Date: 20110624
  Transmission Date: 20111010
  Serious: Yes (Other)
  Sender: FDA-Public Use
  Company Number: None

PATIENT
  Age: 17 Year
  Sex: Female
  Weight: 83.5 kg

DRUGS (22)
  1. CIPROFLOXACIN [Concomitant]
  2. LORAZEPAM [Concomitant]
  3. PANTOPRAZOLE [Concomitant]
  4. URSODIOL [Concomitant]
  5. VANCOMYCIN/POLYMYXIN [Concomitant]
  6. BENADRYL [Concomitant]
  7. CIDOFOVIR [Suspect]
     Indication: VIRAEMIA
     Dosage: 84 MG 3 TIMES A WEEK IV
     Route: 042
     Dates: start: 20110617, end: 20110620
  8. CIDOFOVIR [Suspect]
     Indication: INFECTION IN AN IMMUNOCOMPROMISED HOST
     Dosage: 84 MG 3 TIMES A WEEK IV
     Route: 042
     Dates: start: 20110617, end: 20110620
  9. CIDOFOVIR [Suspect]
     Indication: ADENOVIRUS INFECTION
     Dosage: 84 MG 3 TIMES A WEEK IV
     Route: 042
     Dates: start: 20110617, end: 20110620
  10. MEROPENEM [Concomitant]
  11. MICAFUNGIN [Concomitant]
  12. ONDANSETRON [Concomitant]
  13. CYCLOSPORINE [Concomitant]
  14. SCOPOLAMINE [Concomitant]
  15. DRONABINOL [Concomitant]
  16. HEPARIN [Concomitant]
  17. VITAMIN K TAB [Concomitant]
  18. ERGOCALCIFEROL [Concomitant]
  19. VANCOMYCIN [Concomitant]
  20. FUROSEMIDE [Concomitant]
  21. MORPHINE [Concomitant]
  22. VITAMIN E [Concomitant]

REACTIONS (5)
  - GAZE PALSY [None]
  - ELECTROENCEPHALOGRAM ABNORMAL [None]
  - CONFUSIONAL STATE [None]
  - SOMNOLENCE [None]
  - HALLUCINATION [None]
